FAERS Safety Report 8854387 (Version 3)
Quarter: 2013Q1

REPORT INFORMATION
  Report Type: Report from Study
  Country: ES (occurrence: ES)
  Receive Date: 20121023
  Receipt Date: 20130121
  Transmission Date: 20140127
  Serious: Yes (Death, Hospitalization, Other)
  Sender: FDA-Public Use
  Company Number: ES-OTSUKA-EU-2012-10266

PATIENT
  Sex: Male

DRUGS (4)
  1. SAMSCA [Suspect]
     Indication: INAPPROPRIATE ANTIDIURETIC HORMONE SECRETION
     Dosage: 15 MG MILLIGRAM(S), DAILY DOSE
     Route: 048
     Dates: start: 20120713, end: 20120828
  2. ZYLORIC [Concomitant]
     Indication: KAPOSI^S SARCOMA
     Dosage: 100 MG MILLIGRAM(S), DAILY DOSE
     Route: 042
     Dates: start: 20120724
  3. HEPARINE [Concomitant]
     Indication: PROPHYLAXIS
     Dosage: 1000 IU, QW
     Route: 058
     Dates: start: 20120801
  4. ACICLOVIR [Concomitant]
     Indication: FEBRILE NEUTROPENIA
     Dosage: 250 MG MILLIGRAM(S), DAILY DOSE
     Route: 042
     Dates: start: 20120802

REACTIONS (10)
  - Neutropenia [Fatal]
  - Febrile neutropenia [Recovered/Resolved]
  - Dyspnoea [Recovered/Resolved]
  - Oedema [Not Recovered/Not Resolved]
  - Mucosal inflammation [Not Recovered/Not Resolved]
  - Dysphagia [Recovered/Resolved]
  - Ascites [Not Recovered/Not Resolved]
  - Vomiting [Recovered/Resolved]
  - Platelet count decreased [Not Recovered/Not Resolved]
  - Constipation [Recovered/Resolved]
